FAERS Safety Report 16222771 (Version 1)
Quarter: 2019Q2

REPORT INFORMATION
  Report Type: Report from Study
  Country: US (occurrence: US)
  Receive Date: 20190422
  Receipt Date: 20190422
  Transmission Date: 20190711
  Serious: No
  Sender: FDA-Public Use
  Company Number: PHEH2019US016607

PATIENT

DRUGS (1)
  1. COSENTYX [Suspect]
     Active Substance: SECUKINUMAB
     Indication: PSORIASIS
     Dosage: 300 MG, QW (300MG QWEEK X5 WEEKS THEN 300MG Q 4 WEEKS)
     Route: 058
     Dates: start: 20190328

REACTIONS (1)
  - Injection site bruising [Unknown]
